FAERS Safety Report 21578868 (Version 1)
Quarter: 2022Q4

REPORT INFORMATION
  Report Type: Spontaneous
  Country: JP (occurrence: JP)
  Receive Date: 20221110
  Receipt Date: 20221110
  Transmission Date: 20230112
  Serious: Yes (Death, Hospitalization, Other)
  Sender: FDA-Public Use
  Company Number: JP-BRISTOL-MYERS SQUIBB COMPANY-2022-117935

PATIENT
  Age: 84 Year
  Sex: Male

DRUGS (9)
  1. ELIQUIS [Suspect]
     Active Substance: APIXABAN
     Indication: Cerebrovascular accident prophylaxis
     Route: 065
     Dates: start: 201607, end: 202208
  2. TULOBUTEROL [Concomitant]
     Active Substance: TULOBUTEROL
     Indication: Product used for unknown indication
     Dosage: TAPE;  1 TAPE ONCE DAILY
     Route: 065
  3. MIYA-BM [Concomitant]
     Active Substance: CLOSTRIDIUM BUTYRICUM SPORES STRAIN M-55
     Indication: Product used for unknown indication
     Dosage: 3 DF
     Route: 065
  4. Mochida [Concomitant]
     Indication: Product used for unknown indication
     Dosage: 6 DF
     Route: 065
  5. Teva Takeda [Concomitant]
     Indication: Product used for unknown indication
     Dosage: 1 DF
     Route: 065
  6. IMIDAPRIL [Concomitant]
     Active Substance: IMIDAPRIL
     Indication: Product used for unknown indication
     Dosage: 1 DF
     Route: 065
  7. BELSOMRA [Concomitant]
     Active Substance: SUVOREXANT
     Indication: Product used for unknown indication
     Dosage: 1 TABLET BEFORE BEDTIME, 1 DF
     Route: 065
  8. LOXOPROFEN SODIUM [Concomitant]
     Active Substance: LOXOPROFEN SODIUM
     Indication: Product used for unknown indication
     Dosage: TAPE
     Route: 065
  9. SPIKEVAX [Concomitant]
     Active Substance: ELASOMERAN
     Indication: COVID-19 prophylaxis
     Dosage: 0.25 (ON 08JUL)
     Route: 030

REACTIONS (2)
  - Putamen haemorrhage [Fatal]
  - Cerebral ventricular rupture [Fatal]

NARRATIVE: CASE EVENT DATE: 20220816
